FAERS Safety Report 7630473-2 (Version None)
Quarter: 2011Q3

REPORT INFORMATION
  Report Type: 
  Country: None (occurrence: None)
  Receive Date: 20110722
  Receipt Date: 20110712
  Transmission Date: 20111222
  Serious: Yes (Hospitalization)
  Sender: FDA-Public Use
  Company Number: US-US-EMD SERONO, INC.-7070697

PATIENT
  Sex: Female

DRUGS (6)
  1. REBIF [Suspect]
     Indication: MULTIPLE SCLEROSIS
     Route: 058
     Dates: start: 20110226, end: 20110622
  2. ASPIRIN [Concomitant]
  3. PROZAC [Concomitant]
  4. PLAVIX [Concomitant]
  5. XANAX [Concomitant]
  6. BUSPAR [Concomitant]

REACTIONS (4)
  - ALCOHOL POISONING [None]
  - CONFUSIONAL STATE [None]
  - PANIC ATTACK [None]
  - PARAESTHESIA [None]
